FAERS Safety Report 7968164-0 (Version None)
Quarter: 2011Q4

REPORT INFORMATION
  Report Type: 
  Country: None (occurrence: None)
  Receive Date: 20111209
  Receipt Date: 20111130
  Transmission Date: 20120403
  Serious: Yes (Hospitalization, Other)
  Sender: FDA-Public Use
  Company Number: PHEH2011US010892

PATIENT
  Sex: Female

DRUGS (1)
  1. GILENYA [Suspect]
     Indication: MULTIPLE SCLEROSIS
     Dosage: 0.5 MG, QD
     Route: 048
     Dates: start: 20110201, end: 20111127

REACTIONS (7)
  - HYPOKINESIA [None]
  - NEPHROLITHIASIS [None]
  - DYSPHAGIA [None]
  - STOMATITIS [None]
  - VISUAL IMPAIRMENT [None]
  - URINARY TRACT INFECTION [None]
  - GLOSSODYNIA [None]
